FAERS Safety Report 16205181 (Version 4)
Quarter: 2019Q2

REPORT INFORMATION
  Report Type: Spontaneous
  Country: DK (occurrence: DK)
  Receive Date: 20190416
  Receipt Date: 20190606
  Transmission Date: 20190711
  Serious: Yes (Death, Other)
  Sender: FDA-Public Use
  Company Number: DK-009507513-1904DNK005975

PATIENT
  Age: 69 Year
  Sex: Male

DRUGS (2)
  1. VORICONAZOLE. [Suspect]
     Active Substance: VORICONAZOLE
     Indication: ASPERGILLUS INFECTION
     Dosage: 200 MILLIGRAM, 2X/D
     Dates: start: 2014
  2. POSACONAZOLE [Suspect]
     Active Substance: POSACONAZOLE
     Indication: ASPERGILLUS INFECTION
     Dosage: 300 MILLIGRAM/D
     Dates: start: 2014

REACTIONS (2)
  - Pathogen resistance [Fatal]
  - Drug ineffective [Fatal]

NARRATIVE: CASE EVENT DATE: 201606
